FAERS Safety Report 10249023 (Version 1)
Quarter: 2014Q2

REPORT INFORMATION
  Report Type: Spontaneous
  Country: US (occurrence: None)
  Receive Date: 20140618
  Receipt Date: 20140618
  Transmission Date: 20141212
  Serious: Yes (Hospitalization)
  Sender: FDA-Public Use
  Company Number: None

PATIENT
  Age: 60 Year
  Sex: Female
  Weight: 51.5 kg

DRUGS (1)
  1. CISPLATIN [Suspect]

REACTIONS (7)
  - Dysuria [None]
  - Haematuria [None]
  - Pyrexia [None]
  - Escherichia test positive [None]
  - Blood culture positive [None]
  - Culture urine positive [None]
  - Hydronephrosis [None]
